FAERS Safety Report 4639371-X (Version None)
Quarter: 2005Q2

REPORT INFORMATION
  Report Type: 
  Country: None (occurrence: None)
  Receive Date: 20050418
  Receipt Date: 20050408
  Transmission Date: 20051028
  Serious: Yes (Hospitalization)
  Sender: FDA-Public Use
  Company Number: A001-412-3752

PATIENT
  Age: 62 Year
  Sex: Female

DRUGS (7)
  1. DONEPEZIL HCL [Suspect]
  2. PLACEBO [Suspect]
     Indication: COGNITIVE DISORDER
     Dosage: DOUBLE BLIND, 1 IN 1 D, ORAL
     Route: 048
     Dates: start: 20041227, end: 20040127
  3. PLACEBO [Suspect]
     Indication: COGNITIVE DISORDER
     Dosage: DOUBLE BLIND, 1 IN 1 D, ORAL
     Route: 048
     Dates: start: 20050128, end: 20050405
  4. SYNTHROID [Concomitant]
  5. CENTRUM SILVER (CENTRUM SILVER) [Concomitant]
  6. CALCIUM (CALCIUM) [Concomitant]
  7. NABUMETONE [Concomitant]

REACTIONS (3)
  - LOSS OF CONSCIOUSNESS [None]
  - SINUS ARREST [None]
  - SYNCOPE [None]
